FAERS Safety Report 14801040 (Version 1)
Quarter: 2018Q2

REPORT INFORMATION
  Report Type: Spontaneous
  Country: FR (occurrence: FR)
  Receive Date: 20180424
  Receipt Date: 20180424
  Transmission Date: 20180711
  Serious: Yes (Hospitalization)
  Sender: FDA-Public Use
  Company Number: FR-TEVA-2018-FR-884884

PATIENT
  Age: 88 Year
  Sex: Male
  Weight: 65.6 kg

DRUGS (3)
  1. SEROPLEX 10 MG, COMPRIM? PELLICUL? S?CABLE [Suspect]
     Active Substance: ESCITALOPRAM OXALATE
     Indication: PRODUCT USED FOR UNKNOWN INDICATION
     Dosage: 1 DOSAGE FORMS DAILY;
     Route: 048
  2. FUROSEMIDE. [Suspect]
     Active Substance: FUROSEMIDE
     Indication: MITRAL VALVE INCOMPETENCE
     Dosage: 20 MILLIGRAM DAILY;
     Route: 048
  3. XARELTO [Concomitant]
     Active Substance: RIVAROXABAN
     Route: 065

REACTIONS (3)
  - Orthostatic hypotension [Recovered/Resolved]
  - Fall [Recovered/Resolved]
  - General physical health deterioration [Recovered/Resolved]
